FAERS Safety Report 9289383 (Version 1)
Quarter: 2013Q2

REPORT INFORMATION
  Report Type: Spontaneous
  Country: US (occurrence: US)
  Receive Date: 20130514
  Receipt Date: 20130514
  Transmission Date: 20140414
  Serious: No
  Sender: FDA-Public Use
  Company Number: US-ABBOTT-12P-163-0959704-00

PATIENT
  Sex: Male

DRUGS (4)
  1. GENGRAF [Suspect]
     Indication: PROPHYLAXIS AGAINST TRANSPLANT REJECTION
     Dates: start: 20030805
  2. GENGRAF [Suspect]
  3. GENGRAF [Suspect]
  4. UNSPECIFIED MULTIPLE MEDICATIONS [Concomitant]
     Indication: PRODUCT USED FOR UNKNOWN INDICATION
     Dosage: WIFE STATED THAT THERE ARE TOO MANY TO MENTION.

REACTIONS (4)
  - Drug level increased [Recovered/Resolved]
  - Drug level increased [Recovered/Resolved]
  - Drug level increased [Recovered/Resolved]
  - Drug level increased [Recovered/Resolved]
